FAERS Safety Report 9926666 (Version 1)
Quarter: 2014Q1

REPORT INFORMATION
  Report Type: Spontaneous
  Country: US (occurrence: US)
  Receive Date: 20140226
  Receipt Date: 20140226
  Transmission Date: 20141002
  Serious: No
  Sender: FDA-Public Use
  Company Number: US-AMGEN-USASP2013076384

PATIENT
  Age: 66 Year
  Sex: Female

DRUGS (9)
  1. ENBREL [Suspect]
     Indication: PRODUCT USED FOR UNKNOWN INDICATION
     Dosage: 50 MG, QWK
     Route: 058
  2. PANTOPRAZOLE [Concomitant]
     Dosage: 20 MG, UNK
  3. AMLODIPINE [Concomitant]
     Dosage: 2.5 MG, UNK
  4. PLAQUENIL                          /00072602/ [Concomitant]
     Dosage: 200 MG, UNK
  5. SYNTHROID [Concomitant]
     Dosage: 25 MUG, UNK
  6. LODINE [Concomitant]
     Dosage: 200 MG, UNK
  7. VITAMIN D                          /00107901/ [Concomitant]
     Dosage: 400 UNIT, UNK
  8. CALCIUM [Concomitant]
     Dosage: UNK
  9. FISH OIL [Concomitant]
     Dosage: UNK

REACTIONS (1)
  - Therapeutic response decreased [Unknown]
